FAERS Safety Report 24533462 (Version 1)
Quarter: 2024Q4

REPORT INFORMATION
  Report Type: Spontaneous
  Country: CN (occurrence: CN)
  Receive Date: 20241022
  Receipt Date: 20241022
  Transmission Date: 20250115
  Serious: Yes (Life-Threatening, Other)
  Sender: BAYER HEALTHCARE PHARMACEUTICALS INC.
  Company Number: CN-BAYER-2024A150178

PATIENT
  Age: 48 Year
  Sex: Female
  Weight: 60 kg

DRUGS (3)
  1. ULTRAVIST [Suspect]
     Active Substance: IOPROMIDE
     Indication: Angiocardiogram
     Dosage: 76.89 G, ONCE
     Route: 042
     Dates: start: 20241014, end: 20241014
  2. ULTRAVIST [Suspect]
     Active Substance: IOPROMIDE
     Indication: Palpitations
  3. ULTRAVIST [Suspect]
     Active Substance: IOPROMIDE
     Indication: Chest discomfort

REACTIONS (11)
  - Contrast encephalopathy [Recovering/Resolving]
  - Contrast media allergy [Recovering/Resolving]
  - Cerebrovascular accident [Recovering/Resolving]
  - Conversion disorder [Recovering/Resolving]
  - Headache [Recovering/Resolving]
  - Dizziness [Recovering/Resolving]
  - Aphasia [Recovering/Resolving]
  - Tremor [Recovering/Resolving]
  - Mental fatigue [Recovering/Resolving]
  - Dysarthria [Recovering/Resolving]
  - Muscular weakness [Recovering/Resolving]

NARRATIVE: CASE EVENT DATE: 20241014
